FAERS Safety Report 7641561-9 (Version None)
Quarter: 2011Q3

REPORT INFORMATION
  Report Type: 
  Country: None (occurrence: None)
  Receive Date: 20110728
  Receipt Date: 20110727
  Transmission Date: 20111222
  Serious: Yes (Death, Hospitalization)
  Sender: FDA-Public Use
  Company Number: US-JNJFOC-20110309417

PATIENT
  Sex: Male

DRUGS (7)
  1. LISINOPRIL [Concomitant]
  2. ETANERCEPT [Concomitant]
     Dates: start: 20110228
  3. XANAX [Concomitant]
  4. STELARA [Suspect]
     Indication: PSORIASIS
     Route: 058
     Dates: start: 20100111, end: 20110208
  5. CAMPRAL [Concomitant]
  6. TRAZODONE HCL [Concomitant]
  7. LEXAPRO [Concomitant]

REACTIONS (2)
  - DRUG INEFFECTIVE [None]
  - GASTROINTESTINAL HAEMORRHAGE [None]
